FAERS Safety Report 13928281 (Version 2)
Quarter: 2017Q4

REPORT INFORMATION
  Report Type: Spontaneous
  Country: PL (occurrence: PL)
  Receive Date: 20170901
  Receipt Date: 20171002
  Transmission Date: 20180320
  Serious: Yes (Other)
  Sender: FDA-Public Use
  Company Number: PHHY2017PL126571

PATIENT
  Age: 54 Year
  Sex: Male

DRUGS (6)
  1. YONDELIS [Suspect]
     Active Substance: TRABECTEDIN
     Indication: SARCOMA
     Dosage: UNK
     Route: 065
     Dates: start: 20160623, end: 20170216
  2. GEMCITABINE [Suspect]
     Active Substance: GEMCITABINE\GEMCITABINE HYDROCHLORIDE
     Indication: SARCOMA
     Dosage: UNK
     Route: 065
     Dates: start: 20151202, end: 201605
  3. DOXORUBICIN [Suspect]
     Active Substance: DOXORUBICIN
     Indication: SARCOMA
     Dosage: UNK
     Route: 065
     Dates: start: 20140827, end: 20140831
  4. DACARBAZINE. [Suspect]
     Active Substance: DACARBAZINE
     Indication: SARCOMA
     Dosage: UNK
     Route: 065
     Dates: start: 20140827, end: 20140831
  5. ATEZOLIZUMAB. [Suspect]
     Active Substance: ATEZOLIZUMAB
     Indication: SARCOMA
     Dosage: UNK
     Route: 065
     Dates: start: 201602, end: 201605
  6. DOCETAXEL. [Suspect]
     Active Substance: DOCETAXEL
     Indication: SARCOMA
     Dosage: UNK
     Route: 065
     Dates: start: 20151202, end: 201605

REACTIONS (3)
  - Malignant neoplasm progression [Not Recovered/Not Resolved]
  - Intracardiac thrombus [Recovered/Resolved]
  - Renal cancer [Not Recovered/Not Resolved]

NARRATIVE: CASE EVENT DATE: 20170407
